FAERS Safety Report 23914620 (Version 1)
Quarter: 2024Q2

REPORT INFORMATION
  Report Type: Spontaneous
  Country: US (occurrence: US)
  Receive Date: 20240529
  Receipt Date: 20240529
  Transmission Date: 20240716
  Serious: No
  Sender: FDA-Public Use
  Company Number: US-009507513-2405USA007962

PATIENT
  Sex: Male

DRUGS (1)
  1. KEYTRUDA [Suspect]
     Active Substance: PEMBROLIZUMAB
     Indication: Bladder cancer
     Dosage: UNK
     Route: 042
     Dates: start: 202203, end: 202404

REACTIONS (4)
  - Skin irritation [Unknown]
  - Pruritus [Unknown]
  - Impaired healing [Unknown]
  - Incorrect product administration duration [Unknown]
